FAERS Safety Report 24310651 (Version 1)
Quarter: 2024Q3

REPORT INFORMATION
  Report Type: Spontaneous
  Country: CH (occurrence: CH)
  Receive Date: 20240912
  Receipt Date: 20240912
  Transmission Date: 20241016
  Serious: Yes (Life-Threatening, Hospitalization)
  Sender: SANDOZ
  Company Number: CH-MLMSERVICE-20240903-PI182346-00218-1

PATIENT
  Age: 14 Year
  Sex: Female

DRUGS (3)
  1. METHOTREXATE [Suspect]
     Active Substance: METHOTREXATE
     Indication: Osteosarcoma
     Dosage: 12 G/M2 HIGH DOSE
     Route: 042
  2. LEUCOVORIN [Concomitant]
     Active Substance: LEUCOVORIN\LEUCOVORIN CALCIUM
     Indication: Osteosarcoma
     Route: 065
  3. LEUCOVORIN [Concomitant]
     Active Substance: LEUCOVORIN\LEUCOVORIN CALCIUM
     Route: 065

REACTIONS (9)
  - Acute hepatic failure [Recovered/Resolved]
  - Toxicity to various agents [Recovered/Resolved]
  - Acute kidney injury [Recovered/Resolved]
  - Haemodynamic instability [Recovered/Resolved]
  - Multiple organ dysfunction syndrome [Recovered/Resolved]
  - Encephalopathy [Recovered/Resolved]
  - Cholestasis [Recovered/Resolved]
  - Vasoplegia syndrome [Recovered/Resolved]
  - Drug-induced liver injury [Unknown]
